FAERS Safety Report 8720515 (Version 2)
Quarter: 2015Q3

REPORT INFORMATION
  Report Type: Report from Study
  Country: US (occurrence: US)
  Receive Date: 20120813
  Receipt Date: 20150710
  Transmission Date: 20151125
  Serious: Yes (Other)
  Sender: FDA-Public Use
  Company Number: US-ROCHE-1098689

PATIENT
  Sex: Female

DRUGS (13)
  1. ASPIRIN. [Concomitant]
     Active Substance: ASPIRIN
     Route: 065
  2. THEO-DUR [Concomitant]
     Active Substance: THEOPHYLLINE ANHYDROUS
     Route: 048
  3. LIDOCAINE. [Concomitant]
     Active Substance: LIDOCAINE
     Dosage: 2 MG/MIN
     Route: 042
  4. CARDIZEM [Concomitant]
     Active Substance: DILTIAZEM HYDROCHLORIDE
     Route: 048
  5. ACTIVASE [Suspect]
     Active Substance: ALTEPLASE
     Indication: CHRONIC OBSTRUCTIVE PULMONARY DISEASE
  6. HEPARIN [Concomitant]
     Active Substance: HEPARIN SODIUM
     Indication: VENTRICULAR EXTRASYSTOLES
     Dosage: 1000 UNITS?7500 BOLUS
     Route: 065
  7. ACTIVASE [Suspect]
     Active Substance: ALTEPLASE
     Indication: ACUTE MYOCARDIAL INFARCTION
     Dosage: ALTEPLASE 6 MG BOLUS FOR 1-2 MINUTES FOLLOWED BY INTRAVENOUS 54 MG ALTEPLASE FOR OVER 1 HOUR AND FUR
     Route: 042
  8. MORPHINE SULPHATE DRIP [Concomitant]
     Indication: PAIN
  9. PERSANTINE [Concomitant]
     Active Substance: DIPYRIDAMOLE
     Route: 065
  10. NITROGLYCERIN. [Concomitant]
     Active Substance: NITROGLYCERIN
     Indication: PAIN
     Dosage: 10 MICROGRAM UPTO 70 MICROGRAM
     Route: 041
  11. PROCAINAMIDE [Concomitant]
     Active Substance: PROCAINAMIDE HYDROCHLORIDE
  12. LIDOCAINE. [Concomitant]
     Active Substance: LIDOCAINE
     Indication: VENTRICULAR EXTRASYSTOLES
     Route: 042
  13. PRONESTYL [Concomitant]
     Active Substance: PROCAINAMIDE HYDROCHLORIDE

REACTIONS (4)
  - Ventricular tachycardia [Recovered/Resolved]
  - Wheezing [Unknown]
  - Ventricular extrasystoles [Recovered/Resolved]
  - Discomfort [Recovered/Resolved]
